FAERS Safety Report 4784533-4 (Version None)
Quarter: 2005Q3

REPORT INFORMATION
  Report Type: 
  Country: None (occurrence: None)
  Receive Date: 20050930
  Receipt Date: 20050923
  Transmission Date: 20060218
  Serious: Yes (Other)
  Sender: FDA-Public Use
  Company Number: GB-GLAXOSMITHKLINE-B0395041A

PATIENT
  Sex: Male

DRUGS (1)
  1. LEUKERAN [Suspect]
     Indication: WALDENSTROM'S MACROGLOBULINAEMIA
     Route: 048
     Dates: start: 20000505

REACTIONS (2)
  - MUSCLE ATROPHY [None]
  - WEIGHT DECREASED [None]
